FAERS Safety Report 4320182-X (Version None)
Quarter: 2004Q1

REPORT INFORMATION
  Report Type: 
  Country: None (occurrence: None)
  Receive Date: 20040317
  Receipt Date: 20040310
  Transmission Date: 20041129
  Serious: Yes (Death)
  Sender: FDA-Public Use
  Company Number: 04-00119

PATIENT
  Age: 41 Year
  Sex: Male

DRUGS (1)
  1. KADIAN [Suspect]

REACTIONS (1)
  - DRUG TOXICITY [None]
